FAERS Safety Report 6766728-3 (Version None)
Quarter: 2010Q2

REPORT INFORMATION
  Report Type: 
  Country: None (occurrence: None)
  Receive Date: 20100611
  Receipt Date: 20100607
  Transmission Date: 20101027
  Serious: Yes (Death)
  Sender: FDA-Public Use
  Company Number: JP-ELI_LILLY_AND_COMPANY-JP201006001891

PATIENT
  Age: 65 Year

DRUGS (2)
  1. HUMALOG MIX 75/25 [Suspect]
     Indication: DIABETES MELLITUS
     Dosage: 30 U, EACH MORNING
     Route: 058
  2. HUMALOG MIX 75/25 [Suspect]
     Dosage: 22 U, EACH EVENING
     Route: 058

REACTIONS (3)
  - BLOOD GLUCOSE FLUCTUATION [None]
  - DEATH [None]
  - GLYCOSYLATED HAEMOGLOBIN INCREASED [None]
